FAERS Safety Report 18798118 (Version 2)
Quarter: 2021Q2

REPORT INFORMATION
  Report Type: Spontaneous
  Country: RU (occurrence: RU)
  Receive Date: 20210128
  Receipt Date: 20210623
  Transmission Date: 20210717
  Serious: No
  Sender: FDA-Public Use
  Company Number: RU-LUPIN PHARMACEUTICALS INC.-2021-00650

PATIENT
  Sex: Male

DRUGS (6)
  1. LAMOTRIGINE TABLETS [Interacting]
     Active Substance: LAMOTRIGINE
     Dosage: 200 MILLIGRAM, QD
     Route: 065
  2. VIMPAT [Interacting]
     Active Substance: LACOSAMIDE
     Indication: TEMPORAL LOBE EPILEPSY
     Dosage: 150 MILLIGRAM, QD
     Route: 065
     Dates: end: 20181215
  3. DEPAKINE CHRONOSPHERE [Interacting]
     Active Substance: VALPROIC ACID
     Indication: TEMPORAL LOBE EPILEPSY
     Dosage: 900 MILLIGRAM, QD
     Route: 065
  4. LAMOTRIGINE TABLETS [Suspect]
     Active Substance: LAMOTRIGINE
     Indication: PARTIAL SEIZURES
     Dosage: 125 MILLIGRAM, QD
     Route: 065
     Dates: start: 201507
  5. LAMOTRIGINE TABLETS [Interacting]
     Active Substance: LAMOTRIGINE
     Dosage: 200 MILLIGRAM, QD
     Route: 065
  6. LAMOTRIGINE TABLETS [Interacting]
     Active Substance: LAMOTRIGINE
     Dosage: 125 MILLIGRAM, QD
     Route: 065

REACTIONS (4)
  - Headache [Recovering/Resolving]
  - Diplopia [Recovering/Resolving]
  - Dizziness [Recovering/Resolving]
  - Drug interaction [Unknown]
